FAERS Safety Report 4397545-X (Version None)
Quarter: 2004Q4

REPORT INFORMATION
  Report Type: 
  Country: None (occurrence: None)
  Receive Date: 20040708
  Receipt Date: 20040623
  Transmission Date: 20050328
  Serious: Yes (Death)
  Sender: FDA-Public Use
  Company Number: 2004-DE-03482GD

PATIENT
  Sex: Female

DRUGS (3)
  1. CYCLOPHOSPHAMIDE [Suspect]
     Indication: BONE MARROW CONDITIONING REGIMEN
     Dosage: IV
     Route: 042
  2. BUSULPHAN (BUSULPHAN) [Suspect]
     Indication: BONE MARROW CONDITIONING REGIMEN
     Dosage: IV
     Route: 042
  3. ANTI-THYMOCYTE GLOBULIN (ANTITHYMOCYTE IMMUNOGLOBULIN) [Suspect]
     Indication: BONE MARROW CONDITIONING REGIMEN
     Dosage: IV
     Route: 042

REACTIONS (15)
  - ACUTE RESPIRATORY DISTRESS SYNDROME [None]
  - ARRHYTHMIA [None]
  - CARDIAC FAILURE [None]
  - COMA [None]
  - ELECTROENCEPHALOGRAM ABNORMAL [None]
  - GASTROOESOPHAGEAL REFLUX DISEASE [None]
  - GRAFT VERSUS HOST DISEASE [None]
  - LETHARGY [None]
  - LUNG INFECTION [None]
  - PULMONARY HYPERTENSION [None]
  - PULMONARY TOXICITY [None]
  - PYREXIA [None]
  - THERAPY NON-RESPONDER [None]
  - VENOOCCLUSIVE LIVER DISEASE [None]
  - VOMITING [None]
